FAERS Safety Report 7512584-5 (Version None)
Quarter: 2011Q2

REPORT INFORMATION
  Report Type: 
  Country: None (occurrence: None)
  Receive Date: 20110531
  Receipt Date: 20110524
  Transmission Date: 20111010
  Serious: Yes (Disabling, Congenital Anomaly)
  Sender: FDA-Public Use
  Company Number: DE-ROCHE-779352

PATIENT
  Sex: Male
  Weight: 68 kg

DRUGS (2)
  1. PEGINTERFERON ALFA-2A [Suspect]
     Route: 058
     Dates: start: 20100611, end: 20101130
  2. RIBAVIRIN [Suspect]
     Route: 048
     Dates: start: 20101130

REACTIONS (1)
  - MULTIPLE SCLEROSIS [None]
